FAERS Safety Report 10747852 (Version 1)
Quarter: 2015Q1

REPORT INFORMATION
  Report Type: Spontaneous
  Country: TR (occurrence: None)
  Receive Date: 20150127
  Receipt Date: 20150127
  Transmission Date: 20150721
  Serious: Yes (Hospitalization)
  Sender: FDA-Public Use
  Company Number: FK201500355

PATIENT
  Age: 27 Year
  Sex: Male

DRUGS (2)
  1. ETOPOSIDE (MANUFACTURER UNKNOWN) (ETOPOSIDE) (ETOPOSIDE) [Suspect]
     Active Substance: ETOPOSIDE
     Indication: SMALL CELL LUNG CANCER
     Dosage: 180 MG, ON DAYS 1 TO 3?
  2. CISPLATIN (MANUFACTURER UNKNOWN) (CISPLATIN) (CISPLATIN) [Suspect]
     Active Substance: CISPLATIN
     Indication: SMALL CELL LUNG CANCER
     Dosage: 135, ON DAY?

REACTIONS (2)
  - Aphasia [None]
  - Cerebral venous thrombosis [None]
